FAERS Safety Report 17146979 (Version 1)
Quarter: 2019Q4

REPORT INFORMATION
  Report Type: Spontaneous
  Country: US (occurrence: US)
  Receive Date: 20191212
  Receipt Date: 20191212
  Transmission Date: 20200122
  Serious: Yes (Other)
  Sender: FDA-Public Use
  Company Number: US-ELI_LILLY_AND_COMPANY-US201912000637

PATIENT
  Age: 49 Year
  Sex: Female

DRUGS (2)
  1. HUMALOG [Suspect]
     Active Substance: INSULIN LISPRO
     Indication: TYPE 1 DIABETES MELLITUS
     Dosage: UNK UNK, UNKNOWN
     Route: 058
  2. BAQSIMI [Suspect]
     Active Substance: GLUCAGON
     Indication: HYPOGLYCAEMIA
     Dosage: 3 MG, SINGLE
     Route: 045

REACTIONS (8)
  - Hypoglycaemia [Recovered/Resolved]
  - Rhinalgia [Recovering/Resolving]
  - Lacrimation increased [Recovering/Resolving]
  - Nasal congestion [Recovering/Resolving]
  - Periorbital swelling [Recovering/Resolving]
  - Accidental overdose [Recovered/Resolved]
  - Migraine [Not Recovered/Not Resolved]
  - Nasal discomfort [Recovering/Resolving]

NARRATIVE: CASE EVENT DATE: 20191201
